FAERS Safety Report 9915784 (Version 1)
Quarter: 2014Q1

REPORT INFORMATION
  Report Type: Spontaneous
  Country: EG (occurrence: None)
  Receive Date: 20140218
  Receipt Date: 20140218
  Transmission Date: 20141002
  Serious: Yes (Other)
  Sender: FDA-Public Use
  Company Number: 2014P1001122

PATIENT
  Age: 14 Month
  Sex: Female

DRUGS (3)
  1. METHYLPREDNISOLONE [Suspect]
     Indication: IMMUNOSUPPRESSION
     Route: 042
  2. PREDNISONE [Suspect]
     Indication: IMMUNOSUPPRESSION
     Route: 048
  3. TACROLIMUS [Concomitant]

REACTIONS (1)
  - Pneumatosis intestinalis [None]
